FAERS Safety Report 7363888-0 (Version None)
Quarter: 2011Q1

REPORT INFORMATION
  Report Type: 
  Country: None (occurrence: None)
  Receive Date: 20110321
  Receipt Date: 20110222
  Transmission Date: 20110831
  Serious: No
  Sender: FDA-Public Use
  Company Number: US-B.I. PHARMACEUTICALS,INC./RIDGEFIELD-2011-BP-06593BP

PATIENT
  Sex: Female

DRUGS (1)
  1. ATROVENT HFA [Suspect]
     Indication: BRONCHOSPASM
     Dosage: 2 PUF
     Route: 055
     Dates: start: 20110218, end: 20110218

REACTIONS (4)
  - PHARYNGEAL ERYTHEMA [None]
  - DYSPNOEA [None]
  - CHEST DISCOMFORT [None]
  - OROPHARYNGEAL PAIN [None]
